FAERS Safety Report 8280256-8 (Version None)
Quarter: 2012Q2

REPORT INFORMATION
  Report Type: 
  Country: None (occurrence: None)
  Receive Date: 20120412
  Receipt Date: 20110920
  Transmission Date: 20120825
  Serious: No
  Sender: FDA-Public Use
  Company Number: US-ASTRAZENECA-2011SE56774

PATIENT
  Age: 44 Year
  Sex: Male

DRUGS (2)
  1. PRILOSEC [Suspect]
     Dosage: DAILY DOSAGE , 20 MG
     Route: 048
  2. NEXIUM [Suspect]
     Route: 048

REACTIONS (5)
  - OROPHARYNGEAL PAIN [None]
  - CHEST DISCOMFORT [None]
  - GASTROOESOPHAGEAL REFLUX DISEASE [None]
  - DRUG INEFFECTIVE [None]
  - DIARRHOEA [None]
